FAERS Safety Report 16232642 (Version 2)
Quarter: 2020Q3

REPORT INFORMATION
  Report Type: Spontaneous
  Country: US (occurrence: US)
  Receive Date: 20190424
  Receipt Date: 20200805
  Transmission Date: 20201102
  Serious: Yes (Death, Hospitalization)
  Sender: FDA-Public Use
  Company Number: US-JNJFOC-20190415697

PATIENT
  Age: 73 Year
  Sex: Female
  Weight: 107.9 kg

DRUGS (3)
  1. XARELTO [Suspect]
     Active Substance: RIVAROXABAN
     Indication: CEREBROVASCULAR ACCIDENT PROPHYLAXIS
     Route: 048
     Dates: start: 201606, end: 20161230
  2. XARELTO [Suspect]
     Active Substance: RIVAROXABAN
     Indication: ATRIAL FIBRILLATION
  3. WARFARIN [Suspect]
     Active Substance: WARFARIN
     Indication: ATRIAL FIBRILLATION
     Route: 065
     Dates: end: 20161230

REACTIONS (2)
  - Upper gastrointestinal haemorrhage [Recovering/Resolving]
  - Acute kidney injury [Recovered/Resolved]

NARRATIVE: CASE EVENT DATE: 201612
